FAERS Safety Report 20821218 (Version 1)
Quarter: 2022Q2

REPORT INFORMATION
  Report Type: Spontaneous
  Country: US (occurrence: US)
  Receive Date: 20220512
  Receipt Date: 20220512
  Transmission Date: 20220721
  Serious: No
  Sender: FDA-Public Use
  Company Number: US-PFIZER INC-202200463750

PATIENT
  Age: 57 Year
  Sex: Female

DRUGS (1)
  1. XELJANZ XR [Suspect]
     Active Substance: TOFACITINIB CITRATE
     Indication: Rheumatoid arthritis
     Dosage: UNK, 1X/DAY (1 TABLET EVERY DAY AS DIRECTED)
     Dates: start: 20190201

REACTIONS (4)
  - Swelling [Unknown]
  - Urinary tract infection [Unknown]
  - Peripheral swelling [Unknown]
  - Drug ineffective [Unknown]
